FAERS Safety Report 8327913-2 (Version None)
Quarter: 2012Q2

REPORT INFORMATION
  Report Type: 
  Country: None (occurrence: None)
  Receive Date: 20120502
  Receipt Date: 20120425
  Transmission Date: 20120825
  Serious: Yes (Hospitalization)
  Sender: FDA-Public Use
  Company Number: JP-TEVA-328541USA

PATIENT
  Age: 64 Year
  Sex: Female

DRUGS (8)
  1. ACYCLOVIR [Concomitant]
     Dosage: 200 MILLIGRAM;
     Dates: start: 20120113, end: 20120225
  2. MAGNESIUM OXIDE [Concomitant]
     Indication: CONSTIPATION
     Dosage: 1.5 GRAM;
     Dates: start: 20120113
  3. SENNOSIDE A+B CALCIUM [Concomitant]
     Indication: CONSTIPATION
     Dosage: 24 MILLIGRAM;
     Dates: start: 20120113
  4. OMEPRAZOLE [Concomitant]
     Dosage: 20 MILLIGRAM;
     Dates: start: 20120113
  5. FLUTICASONE PROPIONATE W/SALMETEROL [Concomitant]
     Indication: CHRONIC OBSTRUCTIVE PULMONARY DISEASE
     Dates: start: 20120116
  6. TIOTROPIUM BROMIDE [Concomitant]
     Indication: CHRONIC OBSTRUCTIVE PULMONARY DISEASE
     Dosage: 18 MICROGRAM;
  7. TREANDA [Suspect]
     Route: 042
     Dates: start: 20120112
  8. BACTRIM [Concomitant]
     Dosage: 1 DOSAGE FORMS;
     Dates: start: 20120113

REACTIONS (1)
  - CYTOMEGALOVIRUS INFECTION [None]
